FAERS Safety Report 13430781 (Version 1)
Quarter: 2017Q2

REPORT INFORMATION
  Report Type: Spontaneous
  Country: PL (occurrence: PL)
  Receive Date: 20170412
  Receipt Date: 20170412
  Transmission Date: 20170830
  Serious: Yes (Death, Other)
  Sender: FDA-Public Use
  Company Number: PL-LUPIN PHARMACEUTICALS INC.-2017-01700

PATIENT
  Age: 67 Year
  Sex: Male

DRUGS (11)
  1. TRAMADOL. [Suspect]
     Active Substance: TRAMADOL
     Dosage: LARGER DOSE THAN INITIAL
     Route: 048
  2. TRAMADOL. [Suspect]
     Active Substance: TRAMADOL
     Dosage: 50-75 MG IN DROPS
     Route: 048
  3. TRAMADOL. [Suspect]
     Active Substance: TRAMADOL
     Indication: PAIN
     Dosage: 50 MG, EVERY 6-8 HR
     Route: 048
     Dates: start: 20120606
  4. MORPHINE [Suspect]
     Active Substance: MORPHINE
     Indication: PAIN
     Dosage: 2.5 MG, AS NEEDED
     Route: 048
     Dates: start: 20120615
  5. TRIMETHOPRIM. [Concomitant]
     Active Substance: TRIMETHOPRIM
     Indication: MORGANELLA INFECTION
     Dosage: 5 ML, BID
     Route: 065
     Dates: start: 20120607, end: 20120621
  6. OXYCODONE [Suspect]
     Active Substance: OXYCODONE
     Indication: PAIN
     Dosage: 10 MG, BID
     Route: 065
     Dates: start: 20120807
  7. VALPROATE [Concomitant]
     Active Substance: VALPROIC ACID
     Indication: EPILEPSY
     Dosage: 500 MG, BID
     Route: 065
  8. CIPROFLOXACIN. [Concomitant]
     Active Substance: CIPROFLOXACIN
     Indication: MORGANELLA INFECTION
     Dosage: 500 MG, BID
     Route: 048
  9. MORPHINE [Suspect]
     Active Substance: MORPHINE
     Dosage: 5 MG, EVERY 4 HR
     Route: 048
     Dates: start: 20120621
  10. TRAMADOL. [Suspect]
     Active Substance: TRAMADOL
     Dosage: UNK
     Route: 048
  11. MORPHINE [Suspect]
     Active Substance: MORPHINE
     Dosage: EVERY 4 HR
     Route: 058
     Dates: start: 20120817

REACTIONS (8)
  - Chills [Unknown]
  - Loss of consciousness [None]
  - Somnolence [Unknown]
  - Epilepsy [Unknown]
  - Pyrexia [Unknown]
  - Musculoskeletal stiffness [Unknown]
  - Neurological decompensation [None]
  - Apathy [Unknown]

NARRATIVE: CASE EVENT DATE: 20120621
